FAERS Safety Report 9577208 (Version 1)
Quarter: 2013Q4

REPORT INFORMATION
  Report Type: Spontaneous
  Country: US (occurrence: US)
  Receive Date: 20131001
  Receipt Date: 20131001
  Transmission Date: 20140711
  Serious: Yes (Disabling, Other)
  Sender: FDA-Public Use
  Company Number: CHPA2013US014834

PATIENT
  Age: 73 Year
  Sex: Female

DRUGS (2)
  1. EXCEDRIN EXTRA STRENGTH [Suspect]
     Indication: MIGRAINE
     Dosage: 1 DF, QOD
     Route: 048
     Dates: start: 1998
  2. EXCEDRIN EXTRA STRENGTH [Suspect]
     Indication: OFF LABEL USE

REACTIONS (16)
  - Impaired driving ability [Recovered/Resolved]
  - Infectious mononucleosis [Recovered/Resolved]
  - Epstein-Barr virus antibody positive [Recovered/Resolved]
  - Gait disturbance [Recovered/Resolved]
  - Vitamin B12 deficiency [Recovered/Resolved]
  - Arthropod sting [Recovered/Resolved]
  - Arthropod bite [Recovered/Resolved]
  - Fatigue [Recovered/Resolved]
  - Back pain [Recovered/Resolved]
  - Feeling abnormal [Recovered/Resolved]
  - Middle insomnia [Recovered/Resolved]
  - Migraine [Unknown]
  - Headache [Unknown]
  - Disease recurrence [Unknown]
  - Therapeutic response unexpected [Unknown]
  - Incorrect dose administered [Unknown]
